FAERS Safety Report 7498540-4 (Version None)
Quarter: 2011Q2

REPORT INFORMATION
  Report Type: 
  Country: None (occurrence: None)
  Receive Date: 20110524
  Receipt Date: 20110426
  Transmission Date: 20111010
  Serious: Yes (Hospitalization, Other)
  Sender: FDA-Public Use
  Company Number: US-BAYER-201035571NA

PATIENT
  Age: 40 Year
  Sex: Female
  Weight: 70 kg

DRUGS (7)
  1. NAPROXEN (ALEVE) [Concomitant]
     Dosage: UNK
     Dates: start: 20050101
  2. ASCORBIC ACID [Concomitant]
     Dosage: UNK UNK, PRN
  3. YASMIN [Suspect]
     Indication: PRODUCT USED FOR UNKNOWN INDICATION
     Route: 048
     Dates: start: 20071101
  4. LEXAPRO [Concomitant]
     Indication: ANXIETY
     Dosage: 10 MG, QD
     Dates: start: 20050101
  5. NAPROXEN [Concomitant]
  6. LEVOXYL [Concomitant]
     Dosage: 75 MG, QD
     Dates: start: 20000101
  7. KARIVA [Concomitant]

REACTIONS (3)
  - CHOLECYSTITIS [None]
  - MENTAL STATUS CHANGES [None]
  - GALLBLADDER DISORDER [None]
